FAERS Safety Report 5508492-1 (Version None)
Quarter: 2007Q4

REPORT INFORMATION
  Report Type: 
  Country: None (occurrence: None)
  Receive Date: 20071107
  Receipt Date: 20071029
  Transmission Date: 20080405
  Serious: Yes (Hospitalization, Other)
  Sender: FDA-Public Use
  Company Number: SE-JNJFOC-20061202481

PATIENT
  Sex: Female

DRUGS (10)
  1. REMICADE [Suspect]
     Indication: RHEUMATOID ARTHRITIS
     Route: 042
  2. ACETAMINOPHEN [Concomitant]
     Route: 048
  3. FOSAMAX [Concomitant]
     Route: 048
  4. LANSOPRAZOLE [Concomitant]
     Route: 048
  5. KALCIPOS-D [Concomitant]
     Route: 048
  6. FOLACIN [Concomitant]
     Route: 048
  7. BEHEPAN [Concomitant]
     Route: 048
  8. IMUREL [Concomitant]
     Route: 048
  9. PREDNISOLON [Concomitant]
     Route: 048
  10. CHLOROQUINE PHOSPHATE [Concomitant]
     Route: 048

REACTIONS (2)
  - BENIGN RESPIRATORY TRACT NEOPLASM [None]
  - UPPER RESPIRATORY TRACT INFECTION [None]
